FAERS Safety Report 7660690-7 (Version None)
Quarter: 2011Q3

REPORT INFORMATION
  Report Type: 
  Country: None (occurrence: None)
  Receive Date: 20110805
  Receipt Date: 20101011
  Transmission Date: 20111222
  Serious: No
  Sender: FDA-Public Use
  Company Number: US-ABBOTT-10P-163-0677995-00

PATIENT
  Sex: Female
  Weight: 61.744 kg

DRUGS (1)
  1. NIASPAN [Suspect]
     Indication: BLOOD CHOLESTEROL
     Dates: start: 20100925, end: 20101009

REACTIONS (6)
  - CHEST DISCOMFORT [None]
  - PAIN OF SKIN [None]
  - RASH PAPULAR [None]
  - FEELING HOT [None]
  - RASH PRURITIC [None]
  - PRURITUS [None]
